FAERS Safety Report 8459921-5 (Version None)
Quarter: 2012Q2

REPORT INFORMATION
  Report Type: 
  Country: None (occurrence: None)
  Receive Date: 20120622
  Receipt Date: 20120619
  Transmission Date: 20120825
  Serious: Yes (Other)
  Sender: FDA-Public Use
  Company Number: PHEH2012US012233

PATIENT
  Sex: Female

DRUGS (1)
  1. RECLAST [Suspect]
     Dosage: UNK
     Route: 042
     Dates: start: 20120101

REACTIONS (7)
  - MUSCULAR DYSTROPHY [None]
  - DYSPNOEA [None]
  - OSTEOPOROSIS [None]
  - CHEST PAIN [None]
  - BURNING SENSATION [None]
  - BONE PAIN [None]
  - ARTHRALGIA [None]
